FAERS Safety Report 11830049 (Version 1)
Quarter: 2015Q4

REPORT INFORMATION
  Report Type: Report from Study
  Country: US (occurrence: US)
  Receive Date: 20151213
  Receipt Date: 20151213
  Transmission Date: 20160305
  Serious: No
  Sender: FDA-Public Use
  Company Number: US-AMGEN-USASL2015130615

PATIENT
  Age: 62 Year
  Sex: Female

DRUGS (2)
  1. ENBREL [Suspect]
     Active Substance: ETANERCEPT
     Dosage: 50 MG, QWK
     Route: 065
  2. ENBREL [Suspect]
     Active Substance: ETANERCEPT
     Indication: PSORIASIS
     Dosage: 50 MG, 3 TIMES/WK
     Route: 065
     Dates: start: 2009

REACTIONS (8)
  - Skin exfoliation [Unknown]
  - Skin disorder [Unknown]
  - Pain in extremity [Unknown]
  - Condition aggravated [Unknown]
  - Skin lesion [Unknown]
  - Skin plaque [Unknown]
  - Skin induration [Unknown]
  - Injection site discomfort [Unknown]

NARRATIVE: CASE EVENT DATE: 2015
